FAERS Safety Report 9065155 (Version 2)
Quarter: 2013Q1

REPORT INFORMATION
  Report Type: Spontaneous
  Country: US (occurrence: US)
  Receive Date: 20130214
  Receipt Date: 20130325
  Transmission Date: 20140127
  Serious: Yes (Hospitalization, Other)
  Sender: FDA-Public Use
  Company Number: US-PFIZER INC-2013054893

PATIENT
  Age: 53 Year
  Sex: Female
  Weight: 106.6 kg

DRUGS (4)
  1. ESTRING [Suspect]
     Indication: ATROPHIC VULVOVAGINITIS
     Dosage: 2 MG, EVERY 3 MONTHS
     Route: 067
     Dates: start: 20111010, end: 201203
  2. OMEPRAZOLE [Concomitant]
     Dosage: 20 MG, 1X/DAY
  3. ENABLEX [Concomitant]
     Dosage: 5 MG, 1X/DAY
  4. COREG [Concomitant]
     Dosage: 6.25 MG, UNK

REACTIONS (1)
  - Pulmonary embolism [Recovered/Resolved]
